FAERS Safety Report 25633373 (Version 2)
Quarter: 2025Q3

REPORT INFORMATION
  Report Type: Spontaneous
  Country: US (occurrence: US)
  Receive Date: 20250801
  Receipt Date: 20250926
  Transmission Date: 20251020
  Serious: No
  Sender: PFIZER
  Company Number: US-PFIZER INC-202500155135

PATIENT
  Age: 15 Year
  Sex: Male

DRUGS (2)
  1. LITFULO [Suspect]
     Active Substance: RITLECITINIB TOSYLATE
     Indication: Alopecia areata
  2. LITFULO [Suspect]
     Active Substance: RITLECITINIB TOSYLATE
     Route: 048

REACTIONS (2)
  - Hepatitis B surface antibody positive [Unknown]
  - Skin discolouration [Unknown]
